FAERS Safety Report 5684648-2 (Version None)
Quarter: 2008Q1

REPORT INFORMATION
  Report Type: 
  Country: None (occurrence: None)
  Receive Date: 20080328
  Receipt Date: 20070524
  Transmission Date: 20080703
  Serious: Yes (Disabling)
  Sender: FDA-Public Use
  Company Number: US-BRISTOL-MYERS SQUIBB COMPANY-13764899

PATIENT
  Age: 64 Year
  Sex: Female

DRUGS (19)
  1. ERBITUX [Suspect]
     Indication: COLON CANCER
     Dates: start: 20040424, end: 20070424
  2. ERBITUX [Suspect]
     Dates: start: 20040424, end: 20070424
  3. XELODA [Concomitant]
     Indication: COLON CANCER
     Route: 040
     Dates: start: 20070410, end: 20070424
  4. XELODA [Concomitant]
     Route: 040
     Dates: start: 20070410, end: 20070424
  5. OXALIPLATIN [Concomitant]
     Dates: start: 20070417, end: 20070424
  6. ALOXI [Concomitant]
     Dates: start: 20070125, end: 20070424
  7. BENADRYL [Concomitant]
     Dates: start: 20070125, end: 20070424
  8. DECADRON [Concomitant]
     Dates: start: 20070125, end: 20070424
  9. TAGAMET [Concomitant]
     Dates: start: 20070125, end: 20070424
  10. ATROPINE [Concomitant]
     Dates: start: 20070125, end: 20070424
  11. VYTORIN [Concomitant]
     Route: 048
  12. SYNTHROID [Concomitant]
     Route: 048
  13. ASPIRIN [Concomitant]
     Route: 048
  14. PHENERGAN HCL [Concomitant]
     Indication: NAUSEA
     Route: 048
     Dates: start: 20051011
  15. IMODIUM [Concomitant]
  16. TOPROL-XL [Concomitant]
     Route: 048
  17. FLUOROURACIL [Concomitant]
     Route: 042
     Dates: start: 20070207, end: 20070327
  18. CPT-11 [Concomitant]
     Dates: start: 20070207, end: 20070327
  19. LEUCOVORIN CALCIUM [Concomitant]
     Route: 042
     Dates: start: 20070207, end: 20070327

REACTIONS (10)
  - ANAL FISTULA [None]
  - DIARRHOEA [None]
  - DIZZINESS [None]
  - GENITAL RASH [None]
  - MUCOSAL INFLAMMATION [None]
  - TACHYCARDIA [None]
  - VAGINAL CANDIDIASIS [None]
  - VAGINAL DISCHARGE [None]
  - VULVOVAGINAL DISCOMFORT [None]
  - WEIGHT DECREASED [None]
